FAERS Safety Report 7357633-2 (Version None)
Quarter: 2011Q1

REPORT INFORMATION
  Report Type: 
  Country: None (occurrence: None)
  Receive Date: 20110314
  Receipt Date: 20110314
  Transmission Date: 20110831
  Serious: Yes (Other)
  Sender: FDA-Public Use
  Company Number: None

PATIENT
  Age: 54 Year
  Sex: Male
  Weight: 95.2554 kg

DRUGS (1)
  1. VENLAFAXINE HCL EXTENDED-RELEASE [Suspect]
     Indication: DEPRESSION
     Dosage: 1 DAILY PO
     Route: 048
     Dates: start: 20101012, end: 20110313

REACTIONS (6)
  - PRODUCT SOLUBILITY ABNORMAL [None]
  - SUICIDAL IDEATION [None]
  - DEPRESSED MOOD [None]
  - MEDICATION RESIDUE [None]
  - UNEVALUABLE EVENT [None]
  - PRODUCT SUBSTITUTION ISSUE [None]
